FAERS Safety Report 10046933 (Version 1)
Quarter: 2014Q1

REPORT INFORMATION
  Report Type: Spontaneous
  Country: FR (occurrence: None)
  Receive Date: 20140327
  Receipt Date: 20140327
  Transmission Date: 20141002
  Serious: Yes (Life-Threatening)
  Sender: FDA-Public Use
  Company Number: 2014-FR-003079

PATIENT
  Age: 5 Year
  Sex: Female

DRUGS (1)
  1. ERWINASE [Suspect]
     Indication: ACUTE LYMPHOCYTIC LEUKAEMIA
     Dosage: SINGLE, FOR MIN
     Route: 042
     Dates: start: 20140218

REACTIONS (6)
  - Syncope [None]
  - Cyanosis [None]
  - Cough [None]
  - Vomiting [None]
  - Erythema [None]
  - Pallor [None]
